FAERS Safety Report 22535314 (Version 1)
Quarter: 2023Q2

REPORT INFORMATION
  Report Type: Spontaneous
  Country: IT (occurrence: IT)
  Receive Date: 20230608
  Receipt Date: 20230608
  Transmission Date: 20230721
  Serious: Yes (Hospitalization)
  Sender: FDA-Public Use
  Company Number: IT-MYLANLABS-2023M1058356

PATIENT
  Age: 51 Year
  Sex: Male
  Weight: 93 kg

DRUGS (6)
  1. TOPIRAMATE [Suspect]
     Active Substance: TOPIRAMATE
     Indication: Epilepsy
     Dosage: 100 MILLIGRAM, TID
     Route: 065
  2. TOPIRAMATE [Suspect]
     Active Substance: TOPIRAMATE
     Dosage: 100 MILLIGRAM, BID (100MG TWO TABLETS A DAY WAS CONTINUED)
     Route: 065
  3. LEVOTHYROXINE [Concomitant]
     Active Substance: LEVOTHYROXINE
     Indication: Product used for unknown indication
     Dosage: UNK
     Route: 065
  4. OXCARBAZEPINE [Concomitant]
     Active Substance: OXCARBAZEPINE
     Indication: Product used for unknown indication
     Dosage: UNK
     Route: 065
  5. CLOBAZAM [Concomitant]
     Active Substance: CLOBAZAM
     Indication: Product used for unknown indication
     Dosage: UNK
     Route: 065
  6. PIPERACILLIN AND TAZOBACTAM [Concomitant]
     Active Substance: PIPERACILLIN SODIUM\TAZOBACTAM SODIUM
     Indication: Evidence based treatment
     Dosage: UNK
     Route: 065

REACTIONS (11)
  - Renal impairment [Recovering/Resolving]
  - Acidosis hyperchloraemic [Recovered/Resolved]
  - Haemodynamic instability [Recovered/Resolved]
  - Diarrhoea [Recovered/Resolved]
  - Dizziness [Recovered/Resolved]
  - Fatigue [Recovered/Resolved]
  - Mental disorder [Recovered/Resolved]
  - Loss of consciousness [Recovered/Resolved]
  - Seizure [Recovered/Resolved]
  - Toxicity to various agents [Recovered/Resolved]
  - Overdose [Recovered/Resolved]
